FAERS Safety Report 10205594 (Version 2)
Quarter: 2014Q2

REPORT INFORMATION
  Report Type: Spontaneous
  Country: US (occurrence: US)
  Receive Date: 20140529
  Receipt Date: 20140610
  Transmission Date: 20141212
  Serious: No
  Sender: FDA-Public Use
  Company Number: US-GILEAD-2014-0103555

PATIENT
  Sex: Male

DRUGS (3)
  1. LETAIRIS [Suspect]
     Indication: PRODUCT USED FOR UNKNOWN INDICATION
     Dosage: 10 MG, QD
     Route: 065
     Dates: start: 20140115
  2. REMODULIN [Concomitant]
  3. REVATIO [Concomitant]

REACTIONS (4)
  - Infusion site irritation [Unknown]
  - Blister [Unknown]
  - Infection [Unknown]
  - Skin infection [Unknown]
